FAERS Safety Report 9817181 (Version 1)
Quarter: 2014Q1

REPORT INFORMATION
  Report Type: Report from Study
  Country: BR (occurrence: BR)
  Receive Date: 20140114
  Receipt Date: 20140114
  Transmission Date: 20141002
  Serious: Yes (Death, Other)
  Sender: FDA-Public Use
  Company Number: PHHY2014BR003118

PATIENT
  Sex: Male
  Weight: 55 kg

DRUGS (5)
  1. NEOTIAPIM [Suspect]
     Indication: PARKINSON^S DISEASE
     Dosage: 25 MG, BID
     Route: 048
  2. PROLOPA [Concomitant]
     Indication: PARKINSON^S DISEASE
  3. ALOIS [Concomitant]
     Indication: PARKINSON^S DISEASE
  4. LORAZEPAM [Concomitant]
     Indication: ANALGESIC THERAPY
  5. SERTRALINE [Concomitant]
     Indication: ANTIDEPRESSANT THERAPY

REACTIONS (8)
  - Hepatic neoplasm [Fatal]
  - Respiratory failure [Fatal]
  - Cardiac failure [Fatal]
  - Weight decreased [Fatal]
  - Malignant melanoma [Unknown]
  - Metastatic malignant melanoma [Unknown]
  - Sleep disorder [Unknown]
  - Hallucination, visual [Unknown]
